FAERS Safety Report 7210229-5 (Version None)
Quarter: 2010Q4

REPORT INFORMATION
  Report Type: 
  Country: None (occurrence: None)
  Receive Date: 20101223
  Receipt Date: 20101210
  Transmission Date: 20110411
  Serious: Yes (Hospitalization, Other)
  Sender: FDA-Public Use
  Company Number: 020413

PATIENT
  Sex: Female
  Weight: 126.4 kg

DRUGS (11)
  1. CERTOLIZUMAB PEGOL [Suspect]
     Indication: RHEUMATOID ARTHRITIS
     Dosage: (400 MG 1X/2 WEEKS SUBCUTANEOUS)
     Route: 058
     Dates: start: 20100101, end: 20100916
  2. METHOTREXATE [Concomitant]
  3. DAYPRO [Concomitant]
  4. FOLIC ACID [Concomitant]
  5. METFORMIN [Concomitant]
  6. GLIMEPIRIDE [Concomitant]
  7. SKELAXIN [Concomitant]
  8. LYRICA [Concomitant]
  9. OXAPROZIN [Concomitant]
  10. ALEVE [Concomitant]
  11. PERCOCET [Concomitant]

REACTIONS (23)
  - ACUTE RESPIRATORY FAILURE [None]
  - ALBUMIN GLOBULIN RATIO DECREASED [None]
  - BLOOD ALBUMIN DECREASED [None]
  - BLOOD CALCIUM DECREASED [None]
  - BLOOD CREATINE PHOSPHOKINASE INCREASED [None]
  - BLOOD GLUCOSE INCREASED [None]
  - BLOOD PRESSURE SYSTOLIC INCREASED [None]
  - BLOOD SODIUM DECREASED [None]
  - CARDIAC FAILURE CONGESTIVE [None]
  - CHRONIC RESPIRATORY FAILURE [None]
  - FIBRIN D DIMER INCREASED [None]
  - HAEMATOCRIT DECREASED [None]
  - HAEMOGLOBIN DECREASED [None]
  - HYPOXIA [None]
  - LEUKOCYTOSIS [None]
  - LUNG NEOPLASM [None]
  - NEUTROPHIL COUNT INCREASED [None]
  - PARATRACHEAL LYMPHADENOPATHY [None]
  - PNEUMONIA [None]
  - PULMONARY ALVEOLAR HAEMORRHAGE [None]
  - RESPIRATORY ALKALOSIS [None]
  - SINUS TACHYCARDIA [None]
  - URINARY TRACT INFECTION [None]
